FAERS Safety Report 20891833 (Version 9)
Quarter: 2023Q2

REPORT INFORMATION
  Report Type: Spontaneous
  Country: US (occurrence: US)
  Receive Date: 20220530
  Receipt Date: 20230522
  Transmission Date: 20230721
  Serious: No
  Sender: FDA-Public Use
  Company Number: US-PFIZER INC-202200758229

PATIENT
  Age: 74 Year
  Sex: Female
  Weight: 80.7 kg

DRUGS (1)
  1. IBRANCE [Suspect]
     Active Substance: PALBOCICLIB
     Indication: Breast cancer
     Dosage: 125 MG, CYCLIC (ONCE DAILY TAKEN WITH FOOD FOR 21 DAYS FOLLOWED BY 7 DAYS OFF)
     Route: 048

REACTIONS (7)
  - Muscular weakness [Unknown]
  - Hypoacusis [Not Recovered/Not Resolved]
  - Nasopharyngitis [Unknown]
  - Feeling abnormal [Unknown]
  - Ear discomfort [Unknown]
  - Pain [Unknown]
  - Off label use [Unknown]
